FAERS Safety Report 7157706-3 (Version None)
Quarter: 2010Q4

REPORT INFORMATION
  Report Type: 
  Country: None (occurrence: None)
  Receive Date: 20101214
  Receipt Date: 20100318
  Transmission Date: 20110411
  Serious: No
  Sender: FDA-Public Use
  Company Number: US-ASTRAZENECA-2010SE11942

PATIENT
  Sex: Male

DRUGS (2)
  1. CRESTOR [Suspect]
     Route: 048
     Dates: start: 20100315, end: 20100317
  2. CARISOPRODOL [Concomitant]
     Indication: SCIATICA

REACTIONS (1)
  - TONGUE DISCOLOURATION [None]
